FAERS Safety Report 7210290-8 (Version None)
Quarter: 2010Q4

REPORT INFORMATION
  Report Type: 
  Country: None (occurrence: None)
  Receive Date: 20101223
  Receipt Date: 20101215
  Transmission Date: 20110411
  Serious: Yes (Life-Threatening)
  Sender: FDA-Public Use
  Company Number: 2010MA003771

PATIENT
  Age: 44 Year
  Sex: Female

DRUGS (1)
  1. CITALOPRAM HYDROBROMIDE [Suspect]
     Indication: DEPRESSION
     Dosage: 20 MG, PO
     Route: 048
     Dates: start: 20100930

REACTIONS (5)
  - ASPHYXIA [None]
  - ASPIRATION [None]
  - INTENTIONAL OVERDOSE [None]
  - LOWER RESPIRATORY TRACT INFECTION [None]
  - SUICIDE ATTEMPT [None]
